FAERS Safety Report 7618836-2 (Version None)
Quarter: 2011Q3

REPORT INFORMATION
  Report Type: 
  Country: None (occurrence: None)
  Receive Date: 20110718
  Receipt Date: 20110712
  Transmission Date: 20111222
  Serious: Yes (Hospitalization, Congenital Anomaly, Other)
  Sender: FDA-Public Use
  Company Number: US-PFIZER INC-2011158547

PATIENT
  Sex: Female
  Weight: 2.79 kg

DRUGS (2)
  1. EFFEXOR XR [Suspect]
     Dosage: 37.5 MG, UNK
     Route: 064
  2. EFFEXOR XR [Suspect]
     Dosage: 150 MG, UNK
     Route: 064

REACTIONS (4)
  - MATERNAL EXPOSURE DURING PREGNANCY [None]
  - NEONATAL RESPIRATORY DISTRESS SYNDROME [None]
  - CARDIAC MURMUR [None]
  - TALIPES [None]
